FAERS Safety Report 7427451-5 (Version None)
Quarter: 2011Q2

REPORT INFORMATION
  Report Type: 
  Country: None (occurrence: None)
  Receive Date: 20110420
  Receipt Date: 20110415
  Transmission Date: 20111010
  Serious: Yes (Hospitalization, Other)
  Sender: FDA-Public Use
  Company Number: US-ABBOTT-11P-163-0707110-00

PATIENT
  Sex: Male
  Weight: 90.8 kg

DRUGS (3)
  1. UNKNOWN OTHER DRUGS [Concomitant]
     Indication: PRODUCT USED FOR UNKNOWN INDICATION
  2. HUMIRA [Suspect]
     Indication: PSORIATIC ARTHROPATHY
     Dates: start: 20090101
  3. PLAVIX [Suspect]
     Indication: MYOCARDIAL INFARCTION

REACTIONS (1)
  - MYOCARDIAL INFARCTION [None]
